FAERS Safety Report 5754587-7 (Version None)
Quarter: 2008Q2

REPORT INFORMATION
  Report Type: 
  Country: None (occurrence: None)
  Receive Date: 20080530
  Receipt Date: 20080519
  Transmission Date: 20081010
  Serious: Yes (Other)
  Sender: FDA-Public Use
  Company Number: US-PFIZER INC-2008043543

PATIENT
  Sex: Female
  Weight: 129.3 kg

DRUGS (10)
  1. CHANTIX [Suspect]
     Indication: SMOKING CESSATION THERAPY
  2. NOVOCAINE [Interacting]
     Indication: TOOTH EXTRACTION
  3. WELLBUTRIN [Concomitant]
  4. ACETYLSALICYLIC ACID SRT [Concomitant]
  5. METHADONE HCL [Concomitant]
     Indication: BACK PAIN
  6. KLONOPIN [Concomitant]
     Indication: BIPOLAR I DISORDER
  7. TOPROL-XL [Concomitant]
     Indication: HYPERTENSION
  8. TRIAMTERENE AND HYDROCHLOROTHIAZIDE [Concomitant]
  9. FUROSEMIDE [Concomitant]
  10. LISINOPRIL [Concomitant]
     Indication: HYPERTENSION

REACTIONS (3)
  - DRUG INTERACTION [None]
  - HYPOAESTHESIA FACIAL [None]
  - TOOTH INFECTION [None]
